FAERS Safety Report 6249219-8 (Version None)
Quarter: 2009Q2

REPORT INFORMATION
  Report Type: 
  Country: None (occurrence: None)
  Receive Date: 20090629
  Receipt Date: 20090617
  Transmission Date: 20091009
  Serious: Yes (Hospitalization, Other)
  Sender: FDA-Public Use
  Company Number: PHHY2009JP13649

PATIENT
  Sex: Female
  Weight: 42 kg

DRUGS (7)
  1. ICL670A ICL+DISTAB [Suspect]
     Indication: MYELODYSPLASTIC SYNDROME
     Dosage: 500 MG/DAY
     Route: 048
     Dates: start: 20080929, end: 20081010
  2. ICL670A ICL+DISTAB [Suspect]
     Indication: IRON OVERLOAD
     Dosage: 125 MG/DAY
     Route: 048
     Dates: start: 20090323
  3. TAKEPRON [Concomitant]
     Indication: PROPHYLAXIS
     Dosage: 1 DF
     Route: 048
     Dates: start: 20081010
  4. ALLOPURINOL [Concomitant]
     Indication: MYELODYSPLASTIC SYNDROME
     Dosage: 3 DF
     Route: 048
     Dates: start: 20080929
  5. PANALDINE [Concomitant]
     Indication: MYELODYSPLASTIC SYNDROME
     Dosage: 2 DF
     Route: 048
     Dates: start: 20080929
  6. CYANOCOBALAMIN [Concomitant]
     Indication: MYELODYSPLASTIC SYNDROME
     Dosage: 2 DF
     Route: 048
     Dates: start: 20080929
  7. STARASID [Concomitant]
     Indication: MYELODYSPLASTIC SYNDROME
     Dosage: 1 DF
     Route: 048
     Dates: start: 20080929

REACTIONS (6)
  - BLOOD CREATININE INCREASED [None]
  - BLOOD UREA INCREASED [None]
  - FRACTURE [None]
  - GAMMA-GLUTAMYLTRANSFERASE INCREASED [None]
  - GASTROINTESTINAL HAEMORRHAGE [None]
  - ROAD TRAFFIC ACCIDENT [None]
